FAERS Safety Report 15838343 (Version 10)
Quarter: 2020Q2

REPORT INFORMATION
  Report Type: Report from Study
  Country: TW (occurrence: TW)
  Receive Date: 20190117
  Receipt Date: 20200428
  Transmission Date: 20200713
  Serious: Yes (Hospitalization, Other)
  Sender: FDA-Public Use
  Company Number: TW-INCYTE CORPORATION-2019IN000242

PATIENT

DRUGS (128)
  1. THALIDOMIDE [Concomitant]
     Active Substance: THALIDOMIDE
     Dosage: 2 DF, BID
     Route: 065
     Dates: start: 201610
  2. CALCIUM CARBONATE. [Concomitant]
     Active Substance: CALCIUM CARBONATE
     Indication: PRODUCT USED FOR UNKNOWN INDICATION
     Dosage: 500 MG PER TAB
     Route: 048
     Dates: start: 20190920, end: 20191001
  3. CHLORPHENAMINE MALEATE [Concomitant]
     Active Substance: CHLORPHENIRAMINE MALEATE
     Indication: ALLERGY PROPHYLAXIS
     Dosage: 5 MG PER AMP
     Route: 042
     Dates: start: 20180307, end: 20180307
  4. CHLORPHENAMINE MALEATE [Concomitant]
     Active Substance: CHLORPHENIRAMINE MALEATE
     Dosage: 5 MG PER AMP
     Route: 042
     Dates: start: 20190917, end: 20190917
  5. CHLORPHENAMINE MALEATE [Concomitant]
     Active Substance: CHLORPHENIRAMINE MALEATE
     Dosage: 5 MG PER AMP
     Route: 042
     Dates: start: 20181002, end: 20181002
  6. CHLORPHENAMINE MALEATE [Concomitant]
     Active Substance: CHLORPHENIRAMINE MALEATE
     Dosage: 5 MG PER AMP
     Route: 042
     Dates: start: 20190121, end: 20190121
  7. CHLORPHENAMINE MALEATE [Concomitant]
     Active Substance: CHLORPHENIRAMINE MALEATE
     Dosage: 5 MG PER AMP
     Route: 042
     Dates: start: 20181030, end: 20181030
  8. DEFERASIROX. [Concomitant]
     Active Substance: DEFERASIROX
     Indication: PRODUCT USED FOR UNKNOWN INDICATION
     Dosage: 125 MG PER TAB
     Route: 048
     Dates: start: 20190118, end: 20190121
  9. FEBUXOSTAT. [Concomitant]
     Active Substance: FEBUXOSTAT
     Dosage: 40 MG PER TAB
     Route: 048
     Dates: start: 20181219, end: 20190115
  10. FUROSEMIDE;POTASSIUM CHLORIDE [Concomitant]
     Active Substance: FUROSEMIDE\POTASSIUM CHLORIDE
     Dosage: 10 MG PER AMP
     Route: 042
     Dates: start: 20180403, end: 20180403
  11. INSULIN DETEMIR [Concomitant]
     Active Substance: INSULIN DETEMIR
     Dosage: 12 U
     Route: 058
     Dates: start: 20190910, end: 20190916
  12. INSULIN DETEMIR [Concomitant]
     Active Substance: INSULIN DETEMIR
     Dosage: 16 U / CAR
     Route: 058
     Dates: start: 20180206, end: 20181007
  13. INSULIN DETEMIR [Concomitant]
     Active Substance: INSULIN DETEMIR
     Dosage: 20 UNK
     Route: 058
     Dates: start: 20181002, end: 20181224
  14. SAROTEN [Concomitant]
     Active Substance: AMITRIPTYLINE
     Dosage: 50 MG PER TAB
     Route: 048
     Dates: start: 20181219, end: 20190115
  15. JAKAVI [Suspect]
     Active Substance: RUXOLITINIB
     Indication: MYELOFIBROSIS
     Dosage: 20 MG, QD
     Route: 048
     Dates: start: 20151110
  16. JAKAVI [Suspect]
     Active Substance: RUXOLITINIB
     Dosage: 20 MG, QD
     Route: 048
     Dates: start: 20180207, end: 20180626
  17. THALIDOMIDE [Concomitant]
     Active Substance: THALIDOMIDE
     Indication: PRODUCT USED FOR UNKNOWN INDICATION
     Dosage: 1 DF, QHS
     Route: 065
     Dates: start: 201509
  18. CALCIUM CARBONATE. [Concomitant]
     Active Substance: CALCIUM CARBONATE
     Dosage: 1 DF, TID, AC (BEFORE MEALS)
     Route: 048
  19. CHLORPHENAMINE MALEATE [Concomitant]
     Active Substance: CHLORPHENIRAMINE MALEATE
     Dosage: 5 MG PER AMP
     Route: 042
     Dates: start: 20190918, end: 20190918
  20. CHLORPHENAMINE MALEATE [Concomitant]
     Active Substance: CHLORPHENIRAMINE MALEATE
     Dosage: 5 MG PER AMP
     Route: 042
     Dates: start: 20180904, end: 20180904
  21. CHLORPHENAMINE MALEATE [Concomitant]
     Active Substance: CHLORPHENIRAMINE MALEATE
     Dosage: 5 MG PER AMP
     Route: 042
     Dates: start: 20190312, end: 20190312
  22. CHLORPHENAMINE MALEATE [Concomitant]
     Active Substance: CHLORPHENIRAMINE MALEATE
     Dosage: 5 MG PER AMP
     Route: 042
     Dates: start: 20181127, end: 20181127
  23. CHLORPHENAMINE MALEATE [Concomitant]
     Active Substance: CHLORPHENIRAMINE MALEATE
     Dosage: 5 MG PER AMP
     Route: 042
     Dates: start: 20181228, end: 20181228
  24. CHLORPHENAMINE MALEATE [Concomitant]
     Active Substance: CHLORPHENIRAMINE MALEATE
     Dosage: 5 MG PER AMP
     Route: 042
     Dates: start: 20180530, end: 20180530
  25. DEFERASIROX. [Concomitant]
     Active Substance: DEFERASIROX
     Dosage: 625 MG PER TAB
     Route: 048
     Dates: start: 20181127, end: 20190114
  26. FUROSEMIDE;POTASSIUM CHLORIDE [Concomitant]
     Active Substance: FUROSEMIDE\POTASSIUM CHLORIDE
     Indication: OEDEMA
     Dosage: 10 MG PER AMP
     Route: 065
     Dates: start: 20181002, end: 20181002
  27. FUROSEMIDE;POTASSIUM CHLORIDE [Concomitant]
     Active Substance: FUROSEMIDE\POTASSIUM CHLORIDE
     Dosage: 10 MG PER AMP
     Route: 042
     Dates: start: 20190121, end: 20190121
  28. FUROSEMIDE;POTASSIUM CHLORIDE [Concomitant]
     Active Substance: FUROSEMIDE\POTASSIUM CHLORIDE
     Dosage: UNK
     Route: 065
  29. INSULIN DETEMIR [Concomitant]
     Active Substance: INSULIN DETEMIR
     Indication: PRODUCT USED FOR UNKNOWN INDICATION
     Dosage: 12 U
     Route: 058
     Dates: start: 20191009
  30. INSULIN DETEMIR [Concomitant]
     Active Substance: INSULIN DETEMIR
     Dosage: 18 UNK
     Route: 058
     Dates: start: 20190104, end: 20190617
  31. INSULIN DETEMIR [Concomitant]
     Active Substance: INSULIN DETEMIR
     Dosage: 20 UNK
     Route: 058
     Dates: start: 20190103, end: 20190103
  32. GLIPIZIDE;METFORMIN [Concomitant]
     Active Substance: GLIPIZIDE\METFORMIN HYDROCHLORIDE
     Indication: PRODUCT USED FOR UNKNOWN INDICATION
     Dosage: 5 MG PER TAB
     Route: 048
     Dates: start: 20180904
  33. GENTAMICIN. [Concomitant]
     Active Substance: GENTAMICIN
     Indication: PRODUCT USED FOR UNKNOWN INDICATION
     Dosage: 5 G PER TAB (OPH OINT)
     Route: 061
     Dates: start: 20190102, end: 20190103
  34. SILYMARIN [SILYBUM MARIANUM] [Concomitant]
     Indication: PRODUCT USED FOR UNKNOWN INDICATION
     Dosage: 70 MG PER TAB
     Route: 048
     Dates: start: 20180530, end: 20180806
  35. URSODEOXYCHOLIC AC [Concomitant]
     Indication: PRODUCT USED FOR UNKNOWN INDICATION
     Dosage: 100 MG PER TAB
     Route: 048
     Dates: start: 20190117, end: 20190121
  36. JAKAVI [Suspect]
     Active Substance: RUXOLITINIB
     Dosage: 10 MG, QD
     Route: 048
     Dates: start: 20180627, end: 20180709
  37. JAKAVI [Suspect]
     Active Substance: RUXOLITINIB
     Dosage: 20 MG, QD
     Route: 048
     Dates: start: 20180710, end: 20180806
  38. JAKAVI [Suspect]
     Active Substance: RUXOLITINIB
     Dosage: 10 MG, QD
     Route: 048
     Dates: start: 20180807, end: 20181001
  39. JAKAVI [Suspect]
     Active Substance: RUXOLITINIB
     Dosage: 20 MG, QD
     Route: 048
     Dates: start: 20190423
  40. THROUGH [Concomitant]
     Dosage: 24 MG PER TAB
     Route: 048
     Dates: start: 20181127, end: 20181211
  41. CHLORPHENAMINE MALEATE [Concomitant]
     Active Substance: CHLORPHENIRAMINE MALEATE
     Dosage: 5 MG PER AMP
     Route: 042
     Dates: start: 20191008, end: 20191008
  42. CHLORPHENAMINE MALEATE [Concomitant]
     Active Substance: CHLORPHENIRAMINE MALEATE
     Dosage: 5 MG PER AMP
     Route: 042
     Dates: start: 20190813, end: 20190813
  43. CHLORPHENAMINE MALEATE [Concomitant]
     Active Substance: CHLORPHENIRAMINE MALEATE
     Dosage: 5 MG PER AMP
     Route: 042
     Dates: start: 20190618, end: 20190618
  44. CHLORPHENAMINE MALEATE [Concomitant]
     Active Substance: CHLORPHENIRAMINE MALEATE
     Dosage: 5 MG PER AMP
     Route: 042
     Dates: start: 20190820, end: 20190820
  45. DENOSUMAB [Concomitant]
     Active Substance: DENOSUMAB
     Indication: PRODUCT USED FOR UNKNOWN INDICATION
     Dosage: 60 MG PER VIAL
     Route: 058
     Dates: start: 20190909, end: 20190909
  46. DENOSUMAB [Concomitant]
     Active Substance: DENOSUMAB
     Dosage: 60 MG PER VIAL
     Route: 058
     Dates: start: 20190227, end: 20190227
  47. ALPRAZOLAM. [Concomitant]
     Active Substance: ALPRAZOLAM
     Dosage: 0.5 MG PER TAB
     Route: 048
     Dates: start: 20190820, end: 20190911
  48. FEBUXOSTAT. [Concomitant]
     Active Substance: FEBUXOSTAT
     Indication: PRODUCT USED FOR UNKNOWN INDICATION
     Dosage: 40 MG PER TAB
     Route: 048
     Dates: start: 20181218, end: 20190104
  49. FUROSEMIDE;POTASSIUM CHLORIDE [Concomitant]
     Active Substance: FUROSEMIDE\POTASSIUM CHLORIDE
     Dosage: 10 MG PER AMP
     Route: 042
     Dates: start: 20180807, end: 20180807
  50. INSULIN DETEMIR [Concomitant]
     Active Substance: INSULIN DETEMIR
     Dosage: 14 U
     Route: 058
     Dates: start: 20190823, end: 20190824
  51. INSULIN [Concomitant]
     Active Substance: INSULIN NOS
     Indication: PRODUCT USED FOR UNKNOWN INDICATION
     Dosage: 10 U/IV (MONOCOMPONENT)
     Route: 042
     Dates: start: 20181218, end: 20181218
  52. INSULIN [Concomitant]
     Active Substance: INSULIN NOS
     Dosage: 2 U/VIAL (MONOCOMPONENT)
     Route: 042
     Dates: start: 20191204, end: 20191204
  53. SENNOSIDE A+B [Concomitant]
     Active Substance: SENNOSIDES A AND B
     Dosage: 12 MG PER TAB
     Route: 048
     Dates: start: 20190827, end: 20190901
  54. SAROTEN [Concomitant]
     Active Substance: AMITRIPTYLINE
     Indication: PRODUCT USED FOR UNKNOWN INDICATION
     Dosage: 50 MG PER TAB
     Route: 048
     Dates: start: 20180704, end: 20180801
  55. PROLIA [Concomitant]
     Active Substance: DENOSUMAB
     Dosage: 60 MG PER VIAL
     Route: 058
     Dates: start: 20180815, end: 20180815
  56. ZOLPIDEM [Concomitant]
     Active Substance: ZOLPIDEM TARTRATE
     Indication: PRODUCT USED FOR UNKNOWN INDICATION
     Dosage: 10 MG PER TAB
     Route: 048
     Dates: start: 20181222, end: 20181223
  57. ZOPICLONE [Concomitant]
     Active Substance: ZOPICLONE
     Indication: PRODUCT USED FOR UNKNOWN INDICATION
     Dosage: 1 DF, HSPRN
     Route: 048
  58. EXJADE [Concomitant]
     Active Substance: DEFERASIROX
     Indication: PRODUCT USED FOR UNKNOWN INDICATION
     Dosage: 6 DF, QD, AC (BEFORE MEALS)
     Route: 048
  59. THROUGH [Concomitant]
     Indication: PRODUCT USED FOR UNKNOWN INDICATION
     Dosage: 2 DF, QN
     Route: 048
  60. CHLORPHENAMINE MALEATE [Concomitant]
     Active Substance: CHLORPHENIRAMINE MALEATE
     Dosage: 5 MG PER AMP
     Route: 042
     Dates: start: 20191105, end: 20191105
  61. CHLORPHENAMINE MALEATE [Concomitant]
     Active Substance: CHLORPHENIRAMINE MALEATE
     Dosage: 5 MG PER AMP
     Route: 042
     Dates: start: 20190115, end: 20190115
  62. CHLORPHENAMINE MALEATE [Concomitant]
     Active Substance: CHLORPHENIRAMINE MALEATE
     Dosage: 5 MG PER AMP
     Route: 042
     Dates: start: 20190521, end: 20190521
  63. DEFERASIROX. [Concomitant]
     Active Substance: DEFERASIROX
     Dosage: 750 MG PER TAB
     Route: 048
     Dates: start: 20190716
  64. ESTAZOLAM. [Concomitant]
     Active Substance: ESTAZOLAM
     Indication: PRODUCT USED FOR UNKNOWN INDICATION
     Dosage: 1 G PER TAB
     Route: 048
     Dates: start: 20181222, end: 20181223
  65. FUROSEMIDE;POTASSIUM CHLORIDE [Concomitant]
     Active Substance: FUROSEMIDE\POTASSIUM CHLORIDE
     Indication: PROPHYLAXIS
     Dosage: 10 MG PER AMP
     Route: 042
     Dates: start: 20180502, end: 20180502
  66. FUROSEMIDE;POTASSIUM CHLORIDE [Concomitant]
     Active Substance: FUROSEMIDE\POTASSIUM CHLORIDE
     Dosage: 10 MG PER AMP
     Route: 042
     Dates: start: 20180207, end: 20180207
  67. FUROSEMIDE;POTASSIUM CHLORIDE [Concomitant]
     Active Substance: FUROSEMIDE\POTASSIUM CHLORIDE
     Dosage: 10 MG PER AMP
     Route: 042
     Dates: start: 20180530, end: 20180530
  68. INSULIN DETEMIR [Concomitant]
     Active Substance: INSULIN DETEMIR
     Dosage: 17 UNK
     Route: 058
     Dates: start: 20181225, end: 20190102
  69. LINAGLIPTIN [Concomitant]
     Active Substance: LINAGLIPTIN
     Indication: PRODUCT USED FOR UNKNOWN INDICATION
     Dosage: 5 MG PER TAB
     Route: 048
     Dates: start: 20180110, end: 20180529
  70. EURODIN [Concomitant]
     Indication: PRODUCT USED FOR UNKNOWN INDICATION
     Dosage: 4 MG PER TAB
     Route: 048
     Dates: start: 20180704, end: 20180801
  71. ZOLPIDEM [Concomitant]
     Active Substance: ZOLPIDEM TARTRATE
     Dosage: 10 MG PER TAB
     Route: 048
     Dates: start: 20191009, end: 20191202
  72. JAKAVI [Suspect]
     Active Substance: RUXOLITINIB
     Dosage: 20 MG, QD
     Route: 048
     Dates: start: 20181002, end: 20190408
  73. ZOPICLONE [Concomitant]
     Active Substance: ZOPICLONE
     Dosage: 7.5 MG PER TAB
     Route: 048
     Dates: start: 20190920, end: 20191001
  74. CHLORPHENAMINE MALEATE [Concomitant]
     Active Substance: CHLORPHENIRAMINE MALEATE
     Dosage: 5 MG PER AMP
     Route: 042
     Dates: start: 20190409, end: 20190409
  75. CHLORPHENAMINE MALEATE [Concomitant]
     Active Substance: CHLORPHENIRAMINE MALEATE
     Dosage: 5 MG PER AMP
     Route: 042
     Dates: start: 20190716, end: 20190716
  76. CHLORPHENAMINE MALEATE [Concomitant]
     Active Substance: CHLORPHENIRAMINE MALEATE
     Dosage: 5 MG PER AMP
     Route: 042
     Dates: start: 20190423, end: 20190423
  77. DEFERASIROX. [Concomitant]
     Active Substance: DEFERASIROX
     Dosage: 875 MG PER TAB
     Route: 048
     Dates: start: 20190212, end: 20190311
  78. FUROSEMIDE;POTASSIUM CHLORIDE [Concomitant]
     Active Substance: FUROSEMIDE\POTASSIUM CHLORIDE
     Dosage: 10 MG PER AMP
     Route: 042
     Dates: start: 20180904, end: 20180904
  79. INSULIN DETEMIR [Concomitant]
     Active Substance: INSULIN DETEMIR
     Dosage: 22 U
     Route: 058
     Dates: start: 20190618, end: 20190821
  80. INSULIN [Concomitant]
     Active Substance: INSULIN NOS
     Dosage: 4 U (MONOCOMPONENT)
     Route: 042
     Dates: start: 20181230, end: 20190104
  81. KINZOLAM [Concomitant]
     Active Substance: ESTAZOLAM
     Indication: PRODUCT USED FOR UNKNOWN INDICATION
     Dosage: 4 MG PER TAB
     Route: 048
     Dates: start: 20190306, end: 20190403
  82. GLIPIZIDE;METFORMIN [Concomitant]
     Active Substance: GLIPIZIDE\METFORMIN HYDROCHLORIDE
     Dosage: 5 MG PER TAB
     Route: 048
     Dates: start: 20191009, end: 20191202
  83. LINAGLIPTIN [Concomitant]
     Active Substance: LINAGLIPTIN
     Dosage: 5 MG PER TAB
     Route: 048
     Dates: start: 20181225, end: 20190116
  84. SENNOSIDE A+B [Concomitant]
     Active Substance: SENNOSIDES A AND B
     Dosage: 24 MG PER TAB
     Route: 048
     Dates: start: 20181218, end: 20181218
  85. EURODIN [Concomitant]
     Dosage: 4 MG PER TAB
     Route: 048
     Dates: start: 20180412, end: 20180510
  86. EURODIN [Concomitant]
     Dosage: 4 MG PER TAB
     Route: 048
     Dates: start: 20181219, end: 20190115
  87. EURODIN [Concomitant]
     Dosage: 4 MG PER TAB
     Route: 048
     Dates: start: 20180926, end: 20181024
  88. CHLORPHENAMINE MALEATE [Concomitant]
     Active Substance: CHLORPHENIRAMINE MALEATE
     Dosage: 5 MG PER AMP
     Route: 042
     Dates: start: 20180627, end: 20180627
  89. CHLORPHENAMINE MALEATE [Concomitant]
     Active Substance: CHLORPHENIRAMINE MALEATE
     Dosage: 5 MG PER AMP
     Route: 042
     Dates: start: 20180807, end: 20180807
  90. DEFERASIROX. [Concomitant]
     Active Substance: DEFERASIROX
     Dosage: 625 MG PER TAB
     Route: 048
     Dates: start: 20190618, end: 20190715
  91. DEFERASIROX. [Concomitant]
     Active Substance: DEFERASIROX
     Dosage: 875 MG PER TAB
     Route: 048
     Dates: start: 20180110, end: 20180501
  92. FUROSEMIDE;POTASSIUM CHLORIDE [Concomitant]
     Active Substance: FUROSEMIDE\POTASSIUM CHLORIDE
     Dosage: 40 MG PER TAB
     Route: 048
     Dates: start: 20180403, end: 20180501
  93. INSULIN DETEMIR [Concomitant]
     Active Substance: INSULIN DETEMIR
     Dosage: 18 U
     Route: 058
     Dates: start: 20190822, end: 20190822
  94. INSULIN [Concomitant]
     Active Substance: INSULIN NOS
     Dosage: 2 U/VIAL (MONOCOMPONENT)
     Route: 042
     Dates: start: 20191207, end: 20191207
  95. HYDROCORT [HYDROCORTISONE ACETATE] [Concomitant]
     Indication: ALLERGY PROPHYLAXIS
     Dosage: 100 MG PER VIAL
     Route: 042
     Dates: start: 20191008, end: 20191008
  96. PINSAUN [Concomitant]
     Indication: PRODUCT USED FOR UNKNOWN INDICATION
     Dosage: 50 MG PER TAB
     Route: 048
     Dates: start: 20190306, end: 20190403
  97. SAROTEN [Concomitant]
     Active Substance: AMITRIPTYLINE
     Dosage: 50 MG PER TAB
     Route: 048
     Dates: start: 20180926, end: 20181024
  98. CALCIUM [Concomitant]
     Active Substance: CALCIUM
     Indication: DIARRHOEA
     Dosage: 667 MG PER TAB (CALCIUM ACETATE)
     Route: 048
     Dates: start: 20191208, end: 20191211
  99. EXJADE [Concomitant]
     Active Substance: DEFERASIROX
     Dosage: 1000 MG PER TAB
     Route: 048
     Dates: start: 20180502, end: 20180626
  100. CHLORPHENAMINE MALEATE [Concomitant]
     Active Substance: CHLORPHENIRAMINE MALEATE
     Dosage: 5 MG PER AMP
     Route: 042
     Dates: start: 20180502, end: 20180502
  101. CHLORPHENAMINE MALEATE [Concomitant]
     Active Substance: CHLORPHENIRAMINE MALEATE
     Dosage: 5 MG PER AMP
     Route: 042
     Dates: start: 20180403, end: 20180403
  102. CHLORPHENAMINE MALEATE [Concomitant]
     Active Substance: CHLORPHENIRAMINE MALEATE
     Dosage: 5 MG PER AMP
     Route: 042
     Dates: start: 20180110, end: 20180110
  103. DAILYCARE ACTIBEST [Concomitant]
     Indication: PRODUCT USED FOR UNKNOWN INDICATION
     Dosage: UNK
     Route: 048
     Dates: start: 20170306, end: 20191029
  104. DIOSMECTITE;ELECTROLYTES NOS [Concomitant]
     Indication: DIARRHOEA
     Dosage: 3 G/ PKG
     Route: 048
     Dates: start: 20191204, end: 20191206
  105. FUROSEMIDE;POTASSIUM CHLORIDE [Concomitant]
     Active Substance: FUROSEMIDE\POTASSIUM CHLORIDE
     Dosage: 10 MG PER AMP
     Route: 042
     Dates: start: 20180710, end: 20180710
  106. INSULIN DETEMIR [Concomitant]
     Active Substance: INSULIN DETEMIR
     Dosage: 12 U
     Route: 058
     Dates: start: 20190825, end: 20190901
  107. SITAGLIPTIN [Concomitant]
     Active Substance: SITAGLIPTIN
     Dosage: 50 MG/ 500 MG/ TAB
     Route: 048
     Dates: start: 20190910, end: 20190918
  108. SITAGLIPTIN [Concomitant]
     Active Substance: SITAGLIPTIN
     Dosage: 50 MG/ 500 MG/ TAB
     Route: 048
     Dates: start: 20190820, end: 20190820
  109. XANAX [Concomitant]
     Active Substance: ALPRAZOLAM
     Indication: PRODUCT USED FOR UNKNOWN INDICATION
     Dosage: 1 DF, QN
     Route: 048
  110. ZOPICLONE [Concomitant]
     Active Substance: ZOPICLONE
     Dosage: 7.5 MG PER TAB
     Route: 048
     Dates: start: 20181218, end: 20181220
  111. CHLORPHENAMINE MALEATE [Concomitant]
     Active Substance: CHLORPHENIRAMINE MALEATE
     Dosage: 5 MG PER AMP
     Route: 042
     Dates: start: 20191203, end: 20191203
  112. CHLORPHENAMINE MALEATE [Concomitant]
     Active Substance: CHLORPHENIRAMINE MALEATE
     Dosage: 5 MG PER AMP
     Route: 042
     Dates: start: 20190104, end: 20190104
  113. CHLORPHENAMINE MALEATE [Concomitant]
     Active Substance: CHLORPHENIRAMINE MALEATE
     Dosage: 5 MG PER AMP
     Route: 042
     Dates: start: 20180207, end: 20180207
  114. CHLORPHENAMINE MALEATE [Concomitant]
     Active Substance: CHLORPHENIRAMINE MALEATE
     Dosage: 5 MG PER AMP
     Route: 042
     Dates: start: 20191210, end: 20191210
  115. CHLORPHENAMINE MALEATE [Concomitant]
     Active Substance: CHLORPHENIRAMINE MALEATE
     Dosage: 5 MG PER AMP
     Route: 042
     Dates: start: 20180710, end: 20180710
  116. CHLORPHENAMINE MALEATE [Concomitant]
     Active Substance: CHLORPHENIRAMINE MALEATE
     Dosage: 5 MG PER AMP
     Route: 042
     Dates: start: 20190212, end: 20190212
  117. CHLORPHENAMINE MALEATE [Concomitant]
     Active Substance: CHLORPHENIRAMINE MALEATE
     Dosage: 5 MG PER AMP
     Route: 042
     Dates: start: 20181220, end: 20181220
  118. ALPRAZOLAM. [Concomitant]
     Active Substance: ALPRAZOLAM
     Indication: PRODUCT USED FOR UNKNOWN INDICATION
     Dosage: 0.5 MG PER TAB
     Route: 048
     Dates: start: 20190916, end: 20191210
  119. FUROSEMIDE;POTASSIUM CHLORIDE [Concomitant]
     Active Substance: FUROSEMIDE\POTASSIUM CHLORIDE
     Dosage: 10 MG PER AMP
     Route: 042
     Dates: start: 20180627, end: 20180627
  120. INSULIN DETEMIR [Concomitant]
     Active Substance: INSULIN DETEMIR
     Dosage: 12 U
     Route: 058
     Dates: start: 20190910, end: 20190916
  121. INSULIN [Concomitant]
     Active Substance: INSULIN NOS
     Dosage: 8 U/IV (MONOCOMPONENT)
     Route: 042
     Dates: start: 20181218, end: 20181229
  122. PIOGLITAZONE. [Concomitant]
     Active Substance: PIOGLITAZONE
     Indication: PRODUCT USED FOR UNKNOWN INDICATION
     Dosage: 30 MG PER TAB
     Route: 048
     Dates: start: 20180110, end: 20180529
  123. SENNOSIDE A+B [Concomitant]
     Active Substance: SENNOSIDES A AND B
     Indication: PRODUCT USED FOR UNKNOWN INDICATION
     Dosage: 12 MG PER TAB
     Route: 048
     Dates: start: 20190910, end: 20191202
  124. SENNOSIDE A+B [Concomitant]
     Active Substance: SENNOSIDES A AND B
     Dosage: 24 MG PER TAB
     Route: 048
     Dates: start: 20190910, end: 20190911
  125. SAROTEN [Concomitant]
     Active Substance: AMITRIPTYLINE
     Dosage: 50 MG PER TAB
     Route: 048
     Dates: start: 20180412, end: 20180510
  126. SITAGLIPTIN [Concomitant]
     Active Substance: SITAGLIPTIN
     Indication: PRODUCT USED FOR UNKNOWN INDICATION
     Dosage: 100 MG PER TAB
     Route: 048
     Dates: start: 20190820, end: 20190902
  127. SITAGLIPTIN [Concomitant]
     Active Substance: SITAGLIPTIN
     Dosage: 50/ 500 MG/ TAB
     Route: 048
     Dates: start: 20190813, end: 20190818
  128. PROLIA [Concomitant]
     Active Substance: DENOSUMAB
     Indication: PRODUCT USED FOR UNKNOWN INDICATION
     Dosage: 60 MG PER VIAL
     Route: 058
     Dates: start: 20180212, end: 20180212

REACTIONS (43)
  - Productive cough [Unknown]
  - Splenic lesion [Unknown]
  - Blood glucose increased [Unknown]
  - Acute leukaemia [Unknown]
  - Hepatic steatosis [Unknown]
  - Heart rate increased [Unknown]
  - Aortic arteriosclerosis [Unknown]
  - Pyrexia [Recovering/Resolving]
  - Mitral valve incompetence [Unknown]
  - Mitral valve calcification [Unknown]
  - Conjunctival disorder [Unknown]
  - Activated partial thromboplastin time prolonged [Unknown]
  - Pyrexia [Recovered/Resolved]
  - Anal incontinence [Unknown]
  - Chills [Unknown]
  - Altered state of consciousness [Unknown]
  - Pyrexia [Recovered/Resolved]
  - Pyrexia [Recovered/Resolved]
  - Glucose urine present [Unknown]
  - Peripheral swelling [Unknown]
  - Muscular weakness [Unknown]
  - Pericardial effusion [Unknown]
  - Wheezing [Recovered/Resolved]
  - Blood urea increased [Unknown]
  - Fatigue [Unknown]
  - Pyrexia [Recovered/Resolved]
  - Pyuria [Unknown]
  - Blood pressure fluctuation [Unknown]
  - Discoloured vomit [Unknown]
  - Escherichia bacteraemia [Unknown]
  - Thrombocytopenia [Unknown]
  - Anaemia [Unknown]
  - Haematuria [Unknown]
  - Drug ineffective [Unknown]
  - Decreased appetite [Unknown]
  - Cholelithiasis [Unknown]
  - Splenomegaly [Unknown]
  - Pyrexia [Recovered/Resolved]
  - Interstitial lung disease [Unknown]
  - Dyspnoea [Unknown]
  - Gallbladder cholesterolosis [Unknown]
  - Urinary tract infection [Unknown]
  - Urinary incontinence [Unknown]

NARRATIVE: CASE EVENT DATE: 20181216
